FAERS Safety Report 4528238-3 (Version None)
Quarter: 2004Q4

REPORT INFORMATION
  Report Type: 
  Country: None (occurrence: None)
  Receive Date: 20041130
  Receipt Date: 20040729
  Transmission Date: 20050328
  Serious: No
  Sender: FDA-Public Use
  Company Number: WAES 0307USA02853

PATIENT
  Age: 65 Year
  Sex: Male
  Weight: 78.9259 kg

DRUGS (4)
  1. ZETIA [Suspect]
     Indication: LIPIDS INCREASED
     Dosage: 10 MG DAILY PO
     Route: 048
     Dates: start: 20030501
  2. COZAAR [Concomitant]
  3. PEPCID [Concomitant]
  4. VITAMINS (UNSPECIFIED) [Concomitant]

REACTIONS (2)
  - GYNAECOMASTIA [None]
  - THERAPEUTIC RESPONSE DECREASED [None]
